FAERS Safety Report 9059138 (Version 1)
Quarter: 2013Q1

REPORT INFORMATION
  Report Type: Spontaneous
  Country: US (occurrence: US)
  Receive Date: 20130211
  Receipt Date: 20130211
  Transmission Date: 20140127
  Serious: No
  Sender: FDA-Public Use
  Company Number: US-BRISTOL-MYERS SQUIBB COMPANY-17002304

PATIENT
  Sex: Female
  Weight: 117.9 kg

DRUGS (2)
  1. GLUCOPHAGE [Suspect]
     Route: 048
  2. GLIMEPIRIDE [Suspect]
     Route: 048

REACTIONS (1)
  - Glycosylated haemoglobin increased [Unknown]
